FAERS Safety Report 14375834 (Version 1)
Quarter: 2018Q1

REPORT INFORMATION
  Report Type: Spontaneous
  Country: IT (occurrence: IT)
  Receive Date: 20180111
  Receipt Date: 20180111
  Transmission Date: 20180509
  Serious: Yes (Other)
  Sender: FDA-Public Use
  Company Number: IT-MYLANLABS-2018M1002370

PATIENT
  Age: 16 Year
  Sex: Male

DRUGS (9)
  1. TACROLIMUS. [Suspect]
     Active Substance: TACROLIMUS
     Indication: NEPHROTIC SYNDROME
  2. CICLOSPORIN [Suspect]
     Active Substance: CYCLOSPORINE
     Indication: NEPHROTIC SYNDROME
  3. PARACETAMOL [Concomitant]
     Active Substance: ACETAMINOPHEN
     Indication: PRODUCT USED FOR UNKNOWN INDICATION
     Dosage: 15 UNK, UNK
     Route: 048
  4. CETIRIZINE [Concomitant]
     Active Substance: CETIRIZINE HYDROCHLORIDE
     Indication: NEPHROTIC SYNDROME
     Dosage: 0.4 MG/KG, UNK
  5. INTERLEUKIN-2 [Suspect]
     Active Substance: ALDESLEUKIN
     Indication: NEPHROTIC SYNDROME
  6. OFATUMUMAB [Suspect]
     Active Substance: OFATUMUMAB
     Indication: NEPHROTIC SYNDROME
  7. CYCLOPHOSPHAMIDE. [Suspect]
     Active Substance: CYCLOPHOSPHAMIDE
     Indication: NEPHROTIC SYNDROME
  8. METHYLPREDISOLONE [Concomitant]
     Active Substance: METHYLPREDNISOLONE
     Indication: NEPHROTIC SYNDROME
     Dosage: 2 MG/KG, UNK
     Route: 042
  9. RITUXIMAB. [Suspect]
     Active Substance: RITUXIMAB
     Indication: NEPHROTIC SYNDROME

REACTIONS (5)
  - Drug resistance [Unknown]
  - Product use in unapproved indication [Unknown]
  - Nephrotic syndrome [Unknown]
  - Proteinuria [Unknown]
  - Drug ineffective [Unknown]
